FAERS Safety Report 4528501-6 (Version None)
Quarter: 2004Q4

REPORT INFORMATION
  Report Type: 
  Country: None (occurrence: None)
  Receive Date: 20041216
  Receipt Date: 20041116
  Transmission Date: 20050328
  Serious: Yes (Hospitalization)
  Sender: FDA-Public Use
  Company Number: FR-BRISTOL-MYERS SQUIBB COMPANY-12768230

PATIENT
  Age: 56 Year
  Sex: Male
  Weight: 80 kg

DRUGS (3)
  1. ELISOR TABS 20 MG [Suspect]
     Indication: HYPERCHOLESTEROLAEMIA
     Route: 048
     Dates: start: 20040115, end: 20041115
  2. ELISOR TABS 20 MG [Suspect]
     Indication: METABOLIC SYNDROME
     Route: 048
     Dates: start: 20040115, end: 20041115
  3. ALLOPURINOL [Concomitant]
     Dates: start: 19981012

REACTIONS (1)
  - TENDON RUPTURE [None]
